FAERS Safety Report 12671659 (Version 1)
Quarter: 2016Q3

REPORT INFORMATION
  Report Type: Spontaneous
  Country: US (occurrence: US)
  Receive Date: 20160822
  Receipt Date: 20160822
  Transmission Date: 20161109
  Serious: No
  Sender: FDA-Public Use
  Company Number: US-JNJFOC-20160718076

PATIENT
  Age: 36 Year
  Sex: Male

DRUGS (1)
  1. INVEGA TRINZA [Suspect]
     Active Substance: PALIPERIDONE PALMITATE
     Indication: BIPOLAR DISORDER
     Route: 030

REACTIONS (5)
  - Abnormal behaviour [Unknown]
  - Off label use [Unknown]
  - Anger [Unknown]
  - Aggression [Unknown]
  - Product use issue [Unknown]
